FAERS Safety Report 21217678 (Version 1)
Quarter: 2022Q3

REPORT INFORMATION
  Report Type: Report from Study
  Country: AU (occurrence: AU)
  Receive Date: 20220816
  Receipt Date: 20220816
  Transmission Date: 20221026
  Serious: Yes (Other)
  Sender: FDA-Public Use
  Company Number: AU-NOVARTISPH-NVSC2022AU184615

PATIENT
  Age: 53 Year
  Sex: Female

DRUGS (2)
  1. COSENTYX [Suspect]
     Active Substance: SECUKINUMAB
     Indication: Ankylosing spondylitis
     Dosage: 300 MG, QW
     Route: 058
     Dates: start: 20220805
  2. COSENTYX [Suspect]
     Active Substance: SECUKINUMAB
     Dosage: 150 MG, QW
     Route: 058
     Dates: start: 20220805

REACTIONS (9)
  - Syncope [Unknown]
  - Nausea [Unknown]
  - Fatigue [Unknown]
  - Visual impairment [Unknown]
  - Asthenia [Unknown]
  - Feeling cold [Unknown]
  - Pain [Unknown]
  - Hypotension [Unknown]
  - Faeces discoloured [Unknown]

NARRATIVE: CASE EVENT DATE: 20220811
